FAERS Safety Report 6585537-1 (Version None)
Quarter: 2010Q1

REPORT INFORMATION
  Report Type: 
  Country: None (occurrence: None)
  Receive Date: 20100217
  Receipt Date: 20100205
  Transmission Date: 20100710
  Serious: Yes (Hospitalization)
  Sender: FDA-Public Use
  Company Number: GB-GILEAD-2010-0026890

PATIENT
  Age: 32 Year
  Sex: Male

DRUGS (4)
  1. TRUVADA [Suspect]
  2. REYATAZ [Suspect]
     Dates: start: 20091013
  3. RITONAVIR [Suspect]
  4. METOCLOPRAMIDE [Suspect]

REACTIONS (1)
  - NEPHROLITHIASIS [None]
